FAERS Safety Report 5593574-9 (Version None)
Quarter: 2007Q4

REPORT INFORMATION
  Report Type: 
  Country: None (occurrence: None)
  Receive Date: 20071214
  Receipt Date: 20070119
  Transmission Date: 20080405
  Serious: Yes (Other)
  Sender: FDA-Public Use
  Company Number: 2007006144

PATIENT
  Age: 47 Year
  Sex: Male
  Weight: 81.6 kg

DRUGS (1)
  1. XANAX [Suspect]
     Indication: DEPRESSION
     Dosage: 1.5 MG (0.5 MG, TID: EVERYDAY)

REACTIONS (1)
  - MEMORY IMPAIRMENT [None]
